FAERS Safety Report 24309165 (Version 1)
Quarter: 2024Q3

REPORT INFORMATION
  Report Type: Report from Study
  Country: NL (occurrence: NL)
  Receive Date: 20240911
  Receipt Date: 20240911
  Transmission Date: 20241017
  Serious: Yes (Other)
  Sender: ABBVIE
  Company Number: NL-ABBVIE-5672320

PATIENT
  Sex: Male

DRUGS (4)
  1. CARBIDOPA\LEVODOPA [Suspect]
     Active Substance: CARBIDOPA\LEVODOPA
     Indication: Parkinson^s disease
     Route: 050
     Dates: start: 20200106
  2. CARBIDOPA\LEVODOPA [Suspect]
     Active Substance: CARBIDOPA\LEVODOPA
     Dosage: MD: 7.0 ML, CD: 7.5 ML/H, ED: 5.0 ML; CND:5.7 ML/H; REMAINS AT 24 HOURS
     Route: 050
     Dates: start: 20240228
  3. CARBIDOPA\LEVODOPA [Suspect]
     Active Substance: CARBIDOPA\LEVODOPA
     Dosage: MD: 7.0 ML, CD: 7.5 ML/H, ED: 5.0 ML; CND:5.7 ML/H; REMAINS AT 24 HOURS
     Route: 050
     Dates: start: 20231109, end: 20231109
  4. CARBIDOPA\LEVODOPA [Suspect]
     Active Substance: CARBIDOPA\LEVODOPA
     Dosage: MD: 7.0 ML, CD: 7.5 ML/H, ED: 5.0 ML; REMAINS AT 24 HOURS
     Route: 050
     Dates: start: 20231109, end: 20240228

REACTIONS (5)
  - Mechanical ileus [Recovered/Resolved]
  - Pseudomonas infection [Not Recovered/Not Resolved]
  - Gastrointestinal pain [Not Recovered/Not Resolved]
  - Complication of device insertion [Not Recovered/Not Resolved]
  - Fungal infection [Not Recovered/Not Resolved]
